FAERS Safety Report 8826028 (Version 2)
Quarter: 2012Q4

REPORT INFORMATION
  Report Type: 
  Country: SE (occurrence: SE)
  Receive Date: 20121005
  Receipt Date: 20121128
  Transmission Date: 20130627
  Serious: Yes (Hospitalization, Other)
  Sender: FDA-Public Use
  Company Number: SE-PFIZER INC-2012244673

PATIENT
  Age: 70 Year
  Sex: Female
  Weight: 80 kg

DRUGS (4)
  1. LYRICA [Suspect]
     Indication: ANXIETY
     Dosage: 100 mg, daily
     Dates: start: 20110707, end: 20120430
  2. PARGITAN [Concomitant]
     Dosage: 5 mg, 3x/day
     Dates: start: 20060316
  3. CISORDINOL [Concomitant]
     Dosage: 25 mg, 2x/day
     Dates: start: 20060316
  4. RISPERDAL [Concomitant]
     Dosage: 25 mg, every 14 days
     Dates: start: 20080916

REACTIONS (1)
  - Petit mal epilepsy [Recovered/Resolved]
